FAERS Safety Report 5659050-X (Version None)
Quarter: 2008Q1

REPORT INFORMATION
  Report Type: 
  Country: None (occurrence: None)
  Receive Date: 20080310
  Receipt Date: 20071030
  Transmission Date: 20080703
  Serious: No
  Sender: FDA-Public Use
  Company Number: US-BAYER-200713560BCC

PATIENT
  Age: 51 Year
  Sex: Male
  Weight: 88 kg

DRUGS (1)
  1. ALEVE [Suspect]
     Indication: TENDONITIS
     Dosage: TOTAL DAILY DOSE: 220 MG  UNIT DOSE: 220 MG
     Route: 048
     Dates: start: 20071030

REACTIONS (3)
  - ERYTHEMA [None]
  - FEELING HOT [None]
  - PRURITUS [None]
